FAERS Safety Report 9144800 (Version 1)
Quarter: 2013Q1

REPORT INFORMATION
  Report Type: Spontaneous
  Country: US (occurrence: US)
  Receive Date: 20130307
  Receipt Date: 20130307
  Transmission Date: 20140127
  Serious: Yes (Other)
  Sender: FDA-Public Use
  Company Number: US-AMGEN-USASP2013015084

PATIENT
  Age: 55 Year
  Sex: Female

DRUGS (3)
  1. ENBREL [Suspect]
     Indication: RHEUMATOID ARTHRITIS
     Dosage: 50 MG, 2 TIMES/WK
     Dates: start: 20130114
  2. SULFASALAZINE [Concomitant]
     Dosage: 2000 MG, QD FOR ABOUT 5 MONTHS
     Route: 048
  3. INSULIN [Concomitant]
     Dosage: UNK, EXTRA INSULIN WHEN BLOOD SUGAR WAS HIGH

REACTIONS (5)
  - Blood glucose increased [Not Recovered/Not Resolved]
  - Musculoskeletal stiffness [Not Recovered/Not Resolved]
  - Malaise [Recovering/Resolving]
  - Diarrhoea [Not Recovered/Not Resolved]
  - Decreased appetite [Not Recovered/Not Resolved]
